FAERS Safety Report 10970229 (Version 1)
Quarter: 2015Q1

REPORT INFORMATION
  Report Type: Spontaneous
  Country: US (occurrence: None)
  Receive Date: 20150330
  Receipt Date: 20150330
  Transmission Date: 20150721
  Serious: Yes (Disabling, Other)
  Sender: FDA-Public Use
  Company Number: None

PATIENT
  Age: 35 Year
  Sex: Male
  Weight: 86.18 kg

DRUGS (4)
  1. ZOLOFT [Suspect]
     Active Substance: SERTRALINE HYDROCHLORIDE
     Indication: ANXIETY
     Dosage: 2.5, ONCE DAILY, TAKEN BY MOUTH
     Route: 048
     Dates: start: 1996, end: 2006
  2. VITAMIN [Concomitant]
     Active Substance: VITAMINS
  3. PROZAC [Concomitant]
     Active Substance: FLUOXETINE HYDROCHLORIDE
  4. FISH OIL [Concomitant]
     Active Substance: FISH OIL

REACTIONS (3)
  - Crying [None]
  - Self-injurious ideation [None]
  - Anxiety [None]

NARRATIVE: CASE EVENT DATE: 20060817
